FAERS Safety Report 10201081 (Version 2)
Quarter: 2014Q2

REPORT INFORMATION
  Report Type: Report from Study
  Country: NL (occurrence: NL)
  Receive Date: 20140528
  Receipt Date: 20140623
  Transmission Date: 20141212
  Serious: Yes (Other)
  Sender: FDA-Public Use
  Company Number: PHHY2014NL063334

PATIENT
  Age: 76 Year
  Sex: Female

DRUGS (5)
  1. ACLASTA [Suspect]
     Indication: OSTEOPOROSIS
     Dosage: 5 MG, ONCE EVERY 52 WEEKS
     Route: 042
     Dates: start: 201104
  2. ACLASTA [Suspect]
     Dosage: 5 MG, ONCE EVERY 52 WEEKS
     Route: 042
     Dates: start: 20120522
  3. ACLASTA [Suspect]
     Dosage: 5 MG, ONCE EVERY 52 WEEKS
     Route: 042
     Dates: start: 20130524
  4. CALCIUM + VITAMIN D3 [Concomitant]
     Dosage: 500/800 (UNIT UNSPECIFIED), 1 TIME
  5. PARACETAMOL [Concomitant]
     Dosage: 500 MG, 4 TO 6 TIMES

REACTIONS (2)
  - Fall [Recovered/Resolved]
  - Wrist fracture [Unknown]
